FAERS Safety Report 22400779 (Version 1)
Quarter: 2023Q2

REPORT INFORMATION
  Report Type: Spontaneous
  Country: BE (occurrence: BE)
  Receive Date: 20230602
  Receipt Date: 20230602
  Transmission Date: 20230721
  Serious: Yes (Other)
  Sender: FDA-Public Use
  Company Number: BE-BAUSCHBL-2023BNL003852

PATIENT
  Sex: Female

DRUGS (16)
  1. CARTEOLOL HYDROCHLORIDE [Suspect]
     Active Substance: CARTEOLOL HYDROCHLORIDE
     Indication: Glaucoma
     Route: 047
     Dates: start: 20210804
  2. ASPIRIN [Concomitant]
     Active Substance: ASPIRIN
     Indication: Product used for unknown indication
     Dosage: ASAFLOW 80 MG 168 TABLETS
  3. DIAZEPAM [Concomitant]
     Active Substance: DIAZEPAM
     Indication: Product used for unknown indication
     Dosage: 10 MG 60 TABLETS
  4. DUSPATALIN (MEBEVERINE HYDROCHLORIDE) [Concomitant]
     Indication: Product used for unknown indication
     Dosage: 200 MG 60 TABLES
  5. MEDROL [Concomitant]
     Active Substance: METHYLPREDNISOLONE
     Indication: Product used for unknown indication
     Dosage: 16 MG 50 TABLETS
  6. HYDROCHLOROTHIAZIDE\NEBIVOLOL HYDROCHLORIDE [Concomitant]
     Active Substance: HYDROCHLOROTHIAZIDE\NEBIVOLOL HYDROCHLORIDE
     Indication: Product used for unknown indication
     Dosage: 5MG/25MG TABLETS
  7. DEXPANTHENOL [Concomitant]
     Active Substance: DEXPANTHENOL
     Indication: Product used for unknown indication
     Dosage: 20 MG 10 TABLETS
  8. ACETAMINOPHEN [Concomitant]
     Active Substance: ACETAMINOPHEN
     Indication: Product used for unknown indication
     Dosage: 1G 120 TABLETS
  9. CALCIUM CARBONATE [Concomitant]
     Active Substance: CALCIUM CARBONATE
     Indication: Product used for unknown indication
  10. SPIRONOLACTONE [Concomitant]
     Active Substance: SPIRONOLACTONE
     Indication: Product used for unknown indication
     Dosage: 100 MG 50 TABLETS
  11. XALOF [Concomitant]
     Indication: Product used for unknown indication
     Dosage: 50 MCG/ML EYE DROPS UNIDOSE 90 X 0,2ML.
  12. ETHYLMORPHINE HYDROCHLORIDE [Concomitant]
     Active Substance: ETHYLMORPHINE HYDROCHLORIDE
     Indication: Product used for unknown indication
     Dosage: 5 MG 50 TABLETS
  13. MOMETASONE EG [Concomitant]
     Indication: Product used for unknown indication
     Dosage: 50 MCG SUSPENSION FOR NASAL PULVERISATION 3 X 140 DOSES
  14. PANOTILE [Concomitant]
     Indication: Aphthous ulcer
  15. ESCIN [Concomitant]
     Active Substance: ESCIN
     Indication: Product used for unknown indication
     Dosage: 20 MAG 100 TABLETS
  16. RISEDRONATE SODIUM [Concomitant]
     Active Substance: RISEDRONATE SODIUM
     Indication: Product used for unknown indication
     Dosage: 35 MG 12 TABLETS

REACTIONS (2)
  - Fall [Unknown]
  - Overdose [Unknown]
